FAERS Safety Report 7019593-3 (Version None)
Quarter: 2010Q3

REPORT INFORMATION
  Report Type: 
  Country: None (occurrence: None)
  Receive Date: 20100928
  Receipt Date: 20100928
  Transmission Date: 20110219
  Serious: Yes (Hospitalization)
  Sender: FDA-Public Use
  Company Number: None

PATIENT
  Age: 35 Year
  Sex: Female
  Weight: 60.3284 kg

DRUGS (1)
  1. HUMIRA [Suspect]
     Indication: RHEUMATOID ARTHRITIS
     Dosage: 40 MG BIWEEKLY SQ
     Route: 058
     Dates: start: 20091201, end: 20100901

REACTIONS (3)
  - B-CELL LYMPHOMA [None]
  - COUGH [None]
  - DYSPNOEA [None]
